FAERS Safety Report 5718858-2 (Version None)
Quarter: 2008Q2

REPORT INFORMATION
  Report Type: 
  Country: None (occurrence: None)
  Receive Date: 20080425
  Receipt Date: 20080414
  Transmission Date: 20081010
  Serious: Yes (Other)
  Sender: FDA-Public Use
  Company Number: CA-PFIZER INC-2008034370

PATIENT
  Age: 53 Year
  Sex: Female

DRUGS (2)
  1. CHAMPIX [Suspect]
     Route: 048
  2. TEMAZEPAM [Concomitant]
     Indication: SLEEP DISORDER

REACTIONS (2)
  - PALPITATIONS [None]
  - THROAT TIGHTNESS [None]
